FAERS Safety Report 17866957 (Version 1)
Quarter: 2020Q2

REPORT INFORMATION
  Report Type: Spontaneous
  Country: US (occurrence: US)
  Receive Date: 20200605
  Receipt Date: 20200605
  Transmission Date: 20200714
  Serious: No
  Sender: FDA-Public Use
  Company Number: US-BIOMARINAP-US-2020-130109

PATIENT
  Age: 10 Year
  Sex: Male
  Weight: 20.9 kg

DRUGS (1)
  1. VIMIZIM [Suspect]
     Active Substance: ELOSULFASE ALFA
     Indication: MUCOPOLYSACCHARIDOSIS IV
     Dosage: 45 MILLIGRAM, QW
     Route: 065
     Dates: start: 20191025

REACTIONS (3)
  - Eye disorder [Unknown]
  - Pain in extremity [Recovered/Resolved]
  - Hypoacusis [Unknown]

NARRATIVE: CASE EVENT DATE: 20200507
